FAERS Safety Report 8386321-9 (Version None)
Quarter: 2012Q2

REPORT INFORMATION
  Report Type: 
  Country: None (occurrence: None)
  Receive Date: 20120525
  Receipt Date: 20120229
  Transmission Date: 20120825
  Serious: No
  Sender: FDA-Public Use
  Company Number: US-VERTEX PHARMACEUTICALS INC.-AE-2012-003003

PATIENT
  Age: 6 Year
  Sex: Male

DRUGS (2)
  1. KALYDECO [Suspect]
     Indication: CYSTIC FIBROSIS
     Route: 048
  2. ZITHROMAX [Concomitant]

REACTIONS (2)
  - PAIN [None]
  - RASH GENERALISED [None]
